FAERS Safety Report 20207440 (Version 2)
Quarter: 2022Q1

REPORT INFORMATION
  Report Type: Spontaneous
  Country: US (occurrence: US)
  Receive Date: 20211220
  Receipt Date: 20220112
  Transmission Date: 20220423
  Serious: No
  Sender: FDA-Public Use
  Company Number: US-PFIZER INC-202101588874

PATIENT
  Age: 20 Month
  Sex: Female
  Weight: 10.89 kg

DRUGS (1)
  1. GENOTROPIN [Suspect]
     Active Substance: SOMATROPIN
     Indication: Prader-Willi syndrome
     Dosage: 0.5 MG, 1X/DAY
     Dates: start: 20200527

REACTIONS (2)
  - Drug dose omission by device [Unknown]
  - Product preparation issue [Unknown]

NARRATIVE: CASE EVENT DATE: 20211115
